FAERS Safety Report 6133635-9 (Version None)
Quarter: 2009Q1

REPORT INFORMATION
  Report Type: 
  Country: None (occurrence: None)
  Receive Date: 20090324
  Receipt Date: 20090309
  Transmission Date: 20090719
  Serious: Yes (Death)
  Sender: FDA-Public Use
  Company Number: 000530

PATIENT
  Sex: Male
  Weight: 68 kg

DRUGS (7)
  1. PROSTAVASIN /00501501/ (PROSTAVASIN) [Suspect]
     Indication: PERIPHERAL ARTERIAL OCCLUSIVE DISEASE
     Dosage: (20 ?G BID INTRAVENOUS (NOT OTHERWISE SPECIFIED))
     Dates: start: 19901001, end: 19901003
  2. NEPRESOL /00017902/ (NEPRESOL) (NOT SPECIFIED) [Suspect]
     Dosage: (25 MG BID ORAL); FEW WEEKS
     Route: 048
  3. CATAPRES [Suspect]
     Dosage: (0.15 MG BID ORAL); A FEW WEEKS
     Route: 048
  4. MODURETIK (MODURETIK) (NOT SPECIFIED) [Suspect]
     Dosage: (50 MG QD ORAL)
  5. CAPOZIDE 25/15 [Suspect]
     Indication: HYPERTENSION
     Dosage: (1 DF BID, 25 MG/25 MG ORAL); A  FEW MONTHS
     Route: 048
  6. EUGLUCON (EUGLUCON) (NOT SPECIFIED) [Suspect]
     Dosage: (3.5 MG TID, 2-0-1 ORAL)
     Route: 048
  7. GLUCOPHAGE [Suspect]
     Indication: HYPERTENSION
     Dosage: (850 MG BID ORAL)
     Route: 048

REACTIONS (6)
  - CARDIAC FAILURE [None]
  - CEREBRAL INFARCTION [None]
  - GENERAL PHYSICAL HEALTH DETERIORATION [None]
  - MYOCARDIAL INFARCTION [None]
  - PULMONARY OEDEMA [None]
  - VENTRICULAR EXTRASYSTOLES [None]
